FAERS Safety Report 5761103-2 (Version None)
Quarter: 2008Q2

REPORT INFORMATION
  Report Type: 
  Country: None (occurrence: None)
  Receive Date: 20080606
  Receipt Date: 20080605
  Transmission Date: 20081010
  Serious: Yes (Death, Hospitalization)
  Sender: FDA-Public Use
  Company Number: US-BRISTOL-MYERS SQUIBB COMPANY-14203574

PATIENT
  Sex: Female

DRUGS (6)
  1. COUMADIN [Suspect]
     Indication: ATRIAL FIBRILLATION
     Route: 048
  2. COUMADIN [Suspect]
     Indication: THROMBOSIS
     Route: 048
  3. PLAVIX [Suspect]
     Indication: ATRIAL FIBRILLATION
     Route: 048
  4. PLAVIX [Suspect]
     Indication: THROMBOSIS
     Route: 048
  5. ASPIRIN [Suspect]
     Indication: ATRIAL FIBRILLATION
     Route: 048
  6. ASPIRIN [Suspect]
     Indication: THROMBOSIS
     Route: 048

REACTIONS (3)
  - CEREBROVASCULAR ACCIDENT [None]
  - HAEMATOCRIT DECREASED [None]
  - HAEMORRHAGE [None]
